FAERS Safety Report 5093252-9 (Version None)
Quarter: 2006Q3

REPORT INFORMATION
  Report Type: 
  Country: None (occurrence: None)
  Receive Date: 20060828
  Receipt Date: 20060811
  Transmission Date: 20061208
  Serious: No
  Sender: FDA-Public Use
  Company Number: TPA2006A01331

PATIENT
  Age: 69 Year
  Sex: Female
  Weight: 67.1324 kg

DRUGS (10)
  1. ROZEREM [Suspect]
     Indication: INSOMNIA
     Dosage: 4 MG, QHS, PER ORAL
     Route: 048
     Dates: start: 20060810
  2. ROZEREM [Suspect]
     Indication: PAIN
     Dosage: 4 MG, QHS, PER ORAL
     Route: 048
     Dates: start: 20060810
  3. SYNTHROID (LEVOTHYROXINE SODIUM) (50 MICROGRAM) [Concomitant]
  4. BENICAR HCT (HYDROCHLOROTHIAZIDE, OLMESARTAN MEDOXOMIL) [Concomitant]
  5. COREG [Concomitant]
  6. ASPIRIN/CODEINE (ACETYLSALICYLIC ACID, CODEINE PHOSPHATE) [Concomitant]
  7. XANAX (ALPRAZOLAM) (5 MILLIGRAM) [Concomitant]
  8. PREMARIN (ESTROGENS CONJUGATED) (0.625 MILLIGRAM) [Concomitant]
  9. REGLAN (METOCLOPRAMIDE HYDROCHLORIDE) (10 MILLIGRAM) [Concomitant]
  10. OXYCODONE (OXYCODONE) (5 MILLIGRAM) [Concomitant]

REACTIONS (4)
  - HEADACHE [None]
  - INITIAL INSOMNIA [None]
  - NAUSEA [None]
  - SELF-MEDICATION [None]
